FAERS Safety Report 16466170 (Version 3)
Quarter: 2020Q1

REPORT INFORMATION
  Report Type: Other
  Country: US (occurrence: US)
  Receive Date: 20190621
  Receipt Date: 20200324
  Transmission Date: 20200409
  Serious: No
  Sender: FDA-Public Use
  Company Number: US-ACORDA-ACO_159443_2019

PATIENT
  Sex: Male

DRUGS (2)
  1. INBRIJA [Suspect]
     Active Substance: LEVODOPA
     Indication: ON AND OFF PHENOMENON
  2. INBRIJA [Suspect]
     Active Substance: LEVODOPA
     Indication: PARKINSON^S DISEASE
     Dosage: 42 MILLIGRAM, 2 CAPSULES UP TO 5 TIMES PER DAY
     Dates: start: 20190610, end: 20190618

REACTIONS (4)
  - Adverse drug reaction [Unknown]
  - Secretion discharge [Unknown]
  - Mucosal discolouration [Unknown]
  - Cough [Unknown]
